FAERS Safety Report 19130371 (Version 5)
Quarter: 2021Q2

REPORT INFORMATION
  Report Type: Spontaneous
  Country: CA (occurrence: CA)
  Receive Date: 20210413
  Receipt Date: 20210524
  Transmission Date: 20210717
  Serious: Yes (Other)
  Sender: FDA-Public Use
  Company Number: CA-PFIZER INC-2020372809

PATIENT
  Age: 54 Year
  Sex: Male

DRUGS (3)
  1. RUXIENCE [Suspect]
     Active Substance: RITUXIMAB-PVVR
     Indication: GRANULOMATOSIS WITH POLYANGIITIS
     Dosage: 1000 MG X 2
     Route: 042
  2. RUXIENCE [Suspect]
     Active Substance: RITUXIMAB-PVVR
     Indication: DEMYELINATING POLYNEUROPATHY
  3. RUXIENCE [Suspect]
     Active Substance: RITUXIMAB-PVVR
     Indication: CHRONIC INFLAMMATORY DEMYELINATING POLYRADICULONEUROPATHY
     Dosage: 1000 MG EVERY 2 WEEK (2 DOSES1ST CYCLE )
     Route: 042
     Dates: start: 20201105, end: 20201119

REACTIONS (5)
  - Pain [Unknown]
  - Muscular weakness [Unknown]
  - Meningitis aseptic [Unknown]
  - Product use in unapproved indication [Unknown]
  - Off label use [Unknown]
